FAERS Safety Report 8809801 (Version 1)
Quarter: 2012Q4

REPORT INFORMATION
  Report Type: 
  Country: DK (occurrence: CA)
  Receive Date: 20120926
  Receipt Date: 20120926
  Transmission Date: 20130627
  Serious: Yes (Hospitalization, Other)
  Sender: FDA-Public Use
  Company Number: CA-FRI-1000038989

PATIENT
  Age: 19 Year
  Sex: Male

DRUGS (1)
  1. ESCITALOPRAM [Suspect]
     Indication: DEPRESSION
     Dosage: 20 mg
     Route: 048
     Dates: end: 20120907

REACTIONS (1)
  - Convulsion [Recovered/Resolved]
